FAERS Safety Report 20616757 (Version 1)
Quarter: 2022Q1

REPORT INFORMATION
  Report Type: Spontaneous
  Country: CH (occurrence: None)
  Receive Date: 20220321
  Receipt Date: 20220321
  Transmission Date: 20220423
  Serious: Yes (Hospitalization)
  Sender: FDA-Public Use
  Company Number: None

PATIENT
  Age: 48 Year
  Sex: Female

DRUGS (16)
  1. PROPOFOL [Suspect]
     Active Substance: PROPOFOL
     Indication: Skin neoplasm excision
     Dosage: FORM OF ADMIN. REPORTED AS PERFUSOR?ROUTE OF ADMIN REPORTED AS INTRAVENOUS BOLUS
     Route: 042
     Dates: start: 20210728, end: 20210728
  2. REMIFENTANIL [Suspect]
     Active Substance: REMIFENTANIL
     Indication: Skin neoplasm excision
     Dosage: FORM OF ADMIN. REPORTED AS PERFUSOR?ROUTE OF ADMIN REPORTED AS INTRAVENOUS BOLUS
     Route: 042
     Dates: start: 20210728, end: 20210728
  3. ONDANSETRON [Suspect]
     Active Substance: ONDANSETRON
     Indication: Skin neoplasm excision
     Dosage: FORM OF ADMIN. REPORTED AS PERFUSOR?ROUTE OF ADMIN REPORTED AS INTRAVENOUS BOLUS
     Route: 042
     Dates: start: 20210728, end: 20210728
  4. CLINDAMYCIN [Suspect]
     Active Substance: CLINDAMYCIN
     Indication: Skin neoplasm excision
     Dosage: FORM OF ADMIN. REPORTED AS PERFUSOR?ROUTE OF ADMIN REPORTED AS INTRAVENOUS BOLUS
     Route: 042
     Dates: start: 20210728, end: 20210728
  5. METAMIZOLE SODIUM [Suspect]
     Active Substance: METAMIZOLE SODIUM
     Indication: Skin neoplasm excision
     Dosage: FORM OF ADMIN. REPORTED AS PERFUSOR?ROUTE OF ADMIN REPORTED AS INTRAVENOUS BOLUS
     Route: 042
     Dates: start: 20210728, end: 20210728
  6. KETAMINE HYDROCHLORIDE [Suspect]
     Active Substance: KETAMINE HYDROCHLORIDE
     Indication: Skin neoplasm excision
     Dosage: FORM OF ADMIN. REPORTED AS PERFUSOR?ROUTE OF ADMIN REPORTED AS INTRAVENOUS BOLUS
     Route: 042
     Dates: start: 20210728, end: 20210728
  7. FENTANYL [Suspect]
     Active Substance: FENTANYL
     Indication: Skin neoplasm excision
     Dosage: FORM OF ADMIN. REPORTED AS PERFUSOR?ROUTE OF ADMIN REPORTED AS INTRAVENOUS BOLUS
     Route: 042
     Dates: start: 20210728, end: 20210728
  8. LIDOCAINE [Suspect]
     Active Substance: LIDOCAINE
     Indication: Skin neoplasm excision
     Dosage: FORM OF ADMIN. REPORTED AS PERFUSOR?ROUTE OF ADMIN REPORTED AS INTRAVENOUS BOLUS
     Route: 042
     Dates: start: 20210728, end: 20210728
  9. DEXMEDETOMIDINE [Suspect]
     Active Substance: DEXMEDETOMIDINE
     Indication: Skin neoplasm excision
     Dosage: FORM OF ADMIN. REPORTED AS PERFUSOR?ROUTE OF ADMIN REPORTED AS INTRAVENOUS BOLUS
     Route: 042
     Dates: start: 20210728, end: 20210728
  10. EPHEDRINE HYDROCHLORIDE [Suspect]
     Active Substance: EPHEDRINE HYDROCHLORIDE
     Indication: Skin neoplasm excision
     Dosage: FORM OF ADMIN. REPORTED AS PERFUSOR?ROUTE OF ADMIN REPORTED AS INTRAVENOUS BOLUS
     Route: 042
     Dates: start: 20210728, end: 20210728
  11. MAGNESIUM SULFATE [Suspect]
     Active Substance: MAGNESIUM SULFATE
     Indication: Skin neoplasm excision
     Dosage: FORM OF ADMIN. REPORTED AS PERFUSOR?ROUTE OF ADMIN REPORTED AS INTRAVENOUS BOLUS
     Route: 042
     Dates: start: 20210728, end: 20210728
  12. ASPIRIN [Concomitant]
     Active Substance: ASPIRIN
     Dosage: ASPIRIN CARDIO (ACETYLSALICYLIC ACID) 300 MG 1X/DAY
     Route: 048
  13. LEVOTHYROXINE SODIUM [Concomitant]
     Active Substance: LEVOTHYROXINE SODIUM
     Dosage: ELTROXIN? (LEVOTHYROXINE) 0.1 MG EVERY OTHER DAY
     Route: 048
  14. LEVOTHYROXINE SODIUM [Concomitant]
     Active Substance: LEVOTHYROXINE SODIUM
     Dosage: EUTHYROX? (LEVOTHYROXINE) 125 MCG EVERY OTHER DAY
     Route: 048
  15. NAFTAZONE [Concomitant]
     Active Substance: NAFTAZONE
     Dosage: MEDIAVEN? FORTE (NAFTAZONE) 30 MG 1X/DAY
     Route: 048
  16. VITEX AGNUS-CASTUS EXTRACT [Concomitant]
     Dosage: PREMENS? (MONK`S PEPPER) 1X/DAY; IN TOTAL
     Route: 048

REACTIONS (1)
  - Acute generalised exanthematous pustulosis [Recovered/Resolved]

NARRATIVE: CASE EVENT DATE: 20210729
